FAERS Safety Report 4357456-2 (Version None)
Quarter: 2004Q2

REPORT INFORMATION
  Report Type: 
  Country: None (occurrence: None)
  Receive Date: 20040511
  Receipt Date: 20040511
  Transmission Date: 20050107
  Serious: Yes (Hospitalization)
  Sender: FDA-Public Use
  Company Number: None

PATIENT
  Age: 33 Year
  Sex: Female
  Weight: 131.1 kg

DRUGS (2)
  1. CYTARABINE [Suspect]
     Indication: ACUTE LYMPHOCYTIC LEUKAEMIA
  2. OXYCODONE [Concomitant]

REACTIONS (5)
  - BODY TEMPERATURE INCREASED [None]
  - DIZZINESS [None]
  - NEUTROPENIA [None]
  - TACHYCARDIA [None]
  - TACHYPNOEA [None]
